FAERS Safety Report 8145528-6 (Version None)
Quarter: 2012Q1

REPORT INFORMATION
  Report Type: 
  Country: None (occurrence: None)
  Receive Date: 20120217
  Receipt Date: 20110304
  Transmission Date: 20120608
  Serious: No
  Sender: FDA-Public Use
  Company Number: US-ABBOTT-11P-163-0709356-00

PATIENT
  Sex: Male
  Weight: 104.42 kg

DRUGS (4)
  1. SIMCOR [Suspect]
     Indication: POOR PERIPHERAL CIRCULATION
     Dosage: 1000/20MG AT NIGHT
     Dates: start: 20101201
  2. ASPIRIN [Concomitant]
     Indication: PRODUCT USED FOR UNKNOWN INDICATION
     Dosage: PRN
  3. UNKNOWN MEDICATION [Concomitant]
     Indication: BLOOD PRESSURE
     Dosage: DAILY
  4. SIMCOR [Suspect]
     Dosage: 1000/20MG EVERY MORNING

REACTIONS (2)
  - SKIN BURNING SENSATION [None]
  - PRURITUS [None]
